FAERS Safety Report 4789331-3 (Version None)
Quarter: 2005Q3

REPORT INFORMATION
  Report Type: 
  Country: None (occurrence: None)
  Receive Date: 20050929
  Receipt Date: 20050808
  Transmission Date: 20060218
  Serious: No
  Sender: FDA-Public Use
  Company Number: 05P-163-0307895

PATIENT
  Age: 61 Year
  Sex: Female

DRUGS (1)
  1. HUMIRA                 (ADALIMUMAB) [Suspect]
     Dosage: 40 MG, SUBCUTANEOUS
     Route: 058
     Dates: start: 20050601

REACTIONS (1)
  - URINARY TRACT INFECTION [None]
